FAERS Safety Report 21790102 (Version 1)
Quarter: 2022Q4

REPORT INFORMATION
  Report Type: Spontaneous
  Country: NL (occurrence: NL)
  Receive Date: 20221228
  Receipt Date: 20221228
  Transmission Date: 20230113
  Serious: Yes (Life-Threatening, Hospitalization)
  Sender: FDA-Public Use
  Company Number: None

PATIENT
  Sex: Male
  Weight: 77.6 kg

DRUGS (15)
  1. LENALIDOMIDE [Suspect]
     Active Substance: LENALIDOMIDE
     Indication: Plasma cell myeloma
     Dosage: 15 MILLIGRAM, QD,1 X PER DAY 1 PIECE
     Route: 065
     Dates: start: 20220414
  2. METHYLCELLULOSES [Concomitant]
     Active Substance: METHYLCELLULOSES
     Dosage: EYE DROPS 5 MG/ML
     Route: 065
  3. SULFAMETHOXAZOLE\TRIMETHOPRIM [Concomitant]
     Active Substance: SULFAMETHOXAZOLE\TRIMETHOPRIM
     Dosage: TABLET, 80/400 MG (MILLIGRAM)
     Route: 065
  4. VITAMIN D3 [Concomitant]
     Active Substance: CHOLECALCIFEROL
     Dosage: 25 MICROGRAM
     Route: 065
  5. ACETAMINOPHEN [Concomitant]
     Active Substance: ACETAMINOPHEN
     Dosage: CAPSULE, 500 MG (MILLIGRAM)
     Route: 065
  6. PANTOPRAZOLE SODIUM [Concomitant]
     Active Substance: PANTOPRAZOLE SODIUM
     Dosage: GASTRO-RESISTANT TABLET 40 MG
     Route: 065
  7. PILOCARPINE [Concomitant]
     Active Substance: PILOCARPINE
     Dosage: TABLET, 2,5 MG (MILLIGRAM)
     Route: 065
  8. SPIRONOLACTONE [Concomitant]
     Active Substance: SPIRONOLACTONE
     Dosage: TABLET, 25 MG (MILLIGRAM)
     Route: 065
  9. PREDNISOLONE [Concomitant]
     Active Substance: PREDNISOLONE
     Dosage: TABLET, 5 MG (MILLIGRAM)
     Route: 065
  10. ALLOPURINOL [Concomitant]
     Active Substance: ALLOPURINOL
     Dosage: TABLET, 300 MG (MILLIGRAM)
     Route: 065
  11. NIFEDIPINE [Concomitant]
     Active Substance: NIFEDIPINE
     Dosage: REGULATED-RELEASE TABLET 30 MG
     Route: 065
  12. FOLIC ACID [Concomitant]
     Active Substance: FOLIC ACID
     Dosage: TABLET, 0,5 MG (MILLIGRAM)
     Route: 065
  13. PAMIDRONIC ACID [Concomitant]
     Active Substance: PAMIDRONIC ACID
     Dosage: SOLUTION FOR INFUSION 3 MG/ML
     Route: 065
  14. METOPROLOL [Concomitant]
     Active Substance: METOPROLOL
     Dosage: TABLET, 100 MG (MILLIGRAM)
     Route: 065
  15. VALACYCLOVIR HYDROCHLORIDE [Concomitant]
     Active Substance: VALACYCLOVIR HYDROCHLORIDE
     Dosage: TABLET, 500 MG (MILLIGRAM)
     Route: 065

REACTIONS (4)
  - Swelling [Not Recovered/Not Resolved]
  - Parotid gland enlargement [Not Recovered/Not Resolved]
  - Aptyalism [Unknown]
  - Salivary gland pain [Unknown]
